FAERS Safety Report 7735621-1 (Version None)
Quarter: 2011Q3

REPORT INFORMATION
  Report Type: 
  Country: None (occurrence: None)
  Receive Date: 20110907
  Receipt Date: 20110826
  Transmission Date: 20111222
  Serious: Yes (Other)
  Sender: FDA-Public Use
  Company Number: US-RB-028715-11

PATIENT
  Age: 26 Year
  Sex: Female

DRUGS (4)
  1. SUBUTEX [Suspect]
     Route: 060
     Dates: start: 20110701, end: 20110701
  2. SUBUTEX [Suspect]
     Indication: DRUG DEPENDENCE
     Route: 060
     Dates: start: 20110603, end: 20110701
  3. SUBUTEX [Suspect]
     Route: 060
     Dates: start: 20110526, end: 20110528
  4. SUBOXONE [Suspect]
     Indication: DRUG DEPENDENCE
     Route: 060
     Dates: start: 20110529, end: 20110602

REACTIONS (11)
  - DIZZINESS [None]
  - EPISTAXIS [None]
  - MALAISE [None]
  - UNDERDOSE [None]
  - SYNCOPE [None]
  - HEADACHE [None]
  - IMPAIRED DRIVING ABILITY [None]
  - CONSTIPATION [None]
  - ASTHENIA [None]
  - VERTIGO [None]
  - VOMITING [None]
